FAERS Safety Report 7440896-2 (Version None)
Quarter: 2011Q2

REPORT INFORMATION
  Report Type: 
  Country: None (occurrence: None)
  Receive Date: 20110427
  Receipt Date: 20110422
  Transmission Date: 20111010
  Serious: Yes (Death, Hospitalization)
  Sender: FDA-Public Use
  Company Number: TH-PFIZER INC-2011059519

PATIENT
  Sex: Male

DRUGS (1)
  1. SUTENT [Suspect]
     Indication: METASTATIC RENAL CELL CARCINOMA
     Dosage: 37.5 MG, 1X/DAY
     Route: 048
     Dates: start: 20110201, end: 20110201

REACTIONS (5)
  - SEPSIS [None]
  - PNEUMONIA [None]
  - WHITE BLOOD CELL COUNT DECREASED [None]
  - PLATELET COUNT DECREASED [None]
  - GASTROINTESTINAL HAEMORRHAGE [None]
